FAERS Safety Report 6713761-3 (Version None)
Quarter: 2010Q2

REPORT INFORMATION
  Report Type: 
  Country: None (occurrence: None)
  Receive Date: 20100506
  Receipt Date: 20100430
  Transmission Date: 20101027
  Serious: Yes (Death)
  Sender: FDA-Public Use
  Company Number: US-AMGEN-QUU406039

PATIENT
  Sex: Female

DRUGS (5)
  1. NPLATE [Suspect]
     Indication: IDIOPATHIC THROMBOCYTOPENIC PURPURA
     Dates: start: 20090722, end: 20090805
  2. IMMU-G [Concomitant]
     Dates: start: 20090720
  3. NEUPOGEN [Concomitant]
  4. PROCRIT [Concomitant]
  5. ACYCLOVIR [Concomitant]

REACTIONS (1)
  - FAILURE TO THRIVE [None]
